FAERS Safety Report 15871398 (Version 1)
Quarter: 2019Q1

REPORT INFORMATION
  Report Type: Other
  Country: US (occurrence: US)
  Receive Date: 20190126
  Receipt Date: 20190126
  Transmission Date: 20190417
  Serious: No
  Sender: FDA-Public Use
  Company Number: US-ACORDA-ACO_146393_2018

PATIENT
  Age: 15 Year
  Sex: Male

DRUGS (7)
  1. AMPYRA [Suspect]
     Active Substance: DALFAMPRIDINE
     Indication: POLYNEUROPATHY
     Dosage: 10 MG, HS
     Route: 048
     Dates: start: 20171201
  2. RILUTEK [Concomitant]
     Active Substance: RILUZOLE
     Indication: PRODUCT USED FOR UNKNOWN INDICATION
     Dosage: 25 MG, QD (50 MG, HALF TAB FOR 1 WEEK)
     Route: 065
  3. AMPYRA [Suspect]
     Active Substance: DALFAMPRIDINE
     Indication: DEMYELINATION
     Dosage: 10MG, 2 TABLETS (TOTAL 20MG) DAILY
     Route: 048
     Dates: start: 20180131
  4. RILUTEK [Concomitant]
     Active Substance: RILUZOLE
     Dosage: 50 MG HALF TAB TWICE DAILY FOR A WEEK
     Route: 065
  5. RILUTEK [Concomitant]
     Active Substance: RILUZOLE
     Dosage: 50 MG, TWICE DAILY
     Route: 065
  6. AMPYRA [Suspect]
     Active Substance: DALFAMPRIDINE
     Indication: SPINOCEREBELLAR ATAXIA
     Dosage: 10 MG, BID
     Route: 048
  7. AMPYRA [Suspect]
     Active Substance: DALFAMPRIDINE
     Indication: HEREDITARY MOTOR AND SENSORY NEUROPATHY
     Dosage: 20 MG, BID

REACTIONS (3)
  - Off label use [Unknown]
  - Product administered to patient of inappropriate age [Unknown]
  - Product use in unapproved indication [Unknown]

NARRATIVE: CASE EVENT DATE: 20180126
